FAERS Safety Report 8328630-5 (Version None)
Quarter: 2012Q2

REPORT INFORMATION
  Report Type: 
  Country: None (occurrence: None)
  Receive Date: 20120502
  Receipt Date: 20120424
  Transmission Date: 20120825
  Serious: Yes (Other)
  Sender: FDA-Public Use
  Company Number: JP-CELGENEUS-087-21880-11070061

PATIENT
  Sex: Male

DRUGS (22)
  1. REVLIMID [Suspect]
     Route: 048
     Dates: start: 20110527, end: 20110616
  2. ZOLPIDEM [Concomitant]
     Dosage: 10 MILLIGRAM
     Route: 048
     Dates: start: 20110527
  3. DEXAMETHASONE ACETATE [Suspect]
     Route: 048
     Dates: start: 20110708, end: 20110711
  4. VITAMIN B12 [Concomitant]
     Indication: PROPHYLAXIS
     Dosage: 1500 MICROGRAM
     Route: 048
  5. REVLIMID [Suspect]
     Indication: MULTIPLE MYELOMA
     Route: 048
     Dates: start: 20110218, end: 20110309
  6. REVLIMID [Suspect]
     Route: 048
     Dates: start: 20110708, end: 20110728
  7. DEXAMETHASONE ACETATE [Suspect]
     Indication: MULTIPLE MYELOMA
     Route: 048
     Dates: start: 20110218, end: 20110221
  8. DEXAMETHASONE ACETATE [Suspect]
     Route: 048
     Dates: start: 20110527, end: 20110530
  9. REVLIMID [Suspect]
     Route: 048
     Dates: start: 20110318, end: 20110407
  10. DEXAMETHASONE ACETATE [Suspect]
     Route: 048
     Dates: start: 20110415, end: 20110418
  11. DEXAMETHASONE ACETATE [Suspect]
     Route: 048
     Dates: start: 20110805, end: 20110812
  12. PROMACTA [Concomitant]
     Indication: PROPHYLAXIS
     Dosage: 150 MILLIGRAM
     Route: 048
  13. BACTRIM [Concomitant]
     Indication: PROPHYLAXIS
     Dosage: 1 GRAM
     Route: 048
  14. ZOLPIDEM [Concomitant]
     Dosage: 10 MILLIGRAM
     Route: 048
     Dates: start: 20110303, end: 20110427
  15. REVLIMID [Suspect]
     Route: 048
     Dates: start: 20110805, end: 20110818
  16. DEXAMETHASONE ACETATE [Suspect]
     Route: 048
     Dates: start: 20110318, end: 20110321
  17. RABEPRAZOLE SODIUM [Concomitant]
     Indication: PROPHYLAXIS
     Dosage: 10 MILLIGRAM
     Route: 048
     Dates: end: 20110330
  18. ENTERONON-R [Concomitant]
     Dosage: 3 GRAM
     Route: 048
     Dates: end: 20110228
  19. REVLIMID [Suspect]
     Route: 048
     Dates: start: 20110415, end: 20110505
  20. ZOLPIDEM [Concomitant]
     Dosage: 5 MILLIGRAM
     Route: 048
     Dates: end: 20110302
  21. ZOLPIDEM [Concomitant]
     Dosage: 5 MILLIGRAM
     Route: 048
     Dates: start: 20110428
  22. FAMOTIDINE [Concomitant]
     Indication: PROPHYLAXIS
     Dosage: 20 MILLIGRAM
     Route: 048
     Dates: start: 20110331

REACTIONS (10)
  - FEELING ABNORMAL [None]
  - ARRHYTHMIA [None]
  - NEUTROPHIL COUNT DECREASED [None]
  - MALAISE [None]
  - CHEST PAIN [None]
  - DIZZINESS [None]
  - PARAESTHESIA [None]
  - DIARRHOEA [None]
  - WHITE BLOOD CELL COUNT DECREASED [None]
  - PALPITATIONS [None]
